FAERS Safety Report 19894477 (Version 3)
Quarter: 2022Q1

REPORT INFORMATION
  Report Type: Report from Study
  Country: US (occurrence: US)
  Receive Date: 20210928
  Receipt Date: 20220115
  Transmission Date: 20220424
  Serious: Yes (Death, Life-Threatening, Hospitalization)
  Sender: FDA-Public Use
  Company Number: US-REGENERON PHARMACEUTICALS, INC.-2021-88767

PATIENT
  Age: 52 Year
  Sex: Female

DRUGS (21)
  1. CASIRIVIMAB\IMDEVIMAB [Suspect]
     Active Substance: CASIRIVIMAB\IMDEVIMAB
     Indication: COVID-19
     Dosage: UNK
     Route: 042
     Dates: start: 20210922, end: 20210922
  2. MINOXIDIL [Concomitant]
     Active Substance: MINOXIDIL
     Indication: Product used for unknown indication
     Dosage: 2.5 UNK, QD
     Route: 048
     Dates: start: 20210911
  3. NOVOLOG [Concomitant]
     Active Substance: INSULIN ASPART
     Indication: Product used for unknown indication
     Dosage: 12 DF, TID
     Route: 058
     Dates: start: 20210710
  4. NEXIUM                             /01479302/ [Concomitant]
     Indication: Product used for unknown indication
     Dosage: 20 MG, QD
     Route: 048
     Dates: start: 20210413
  5. TUMS EX [Concomitant]
     Active Substance: CALCIUM CARBONATE
     Indication: Product used for unknown indication
     Dosage: 1000 MG, TID
     Route: 048
     Dates: start: 20200728
  6. REGLAN                             /00041901/ [Concomitant]
     Indication: Product used for unknown indication
     Dosage: 5 MG, TID
     Route: 048
     Dates: start: 20200220
  7. PROCARDIA                          /00340701/ [Concomitant]
     Indication: Product used for unknown indication
     Dosage: 90 MG, UNK
     Route: 048
     Dates: start: 20200220
  8. LABETALOL [Concomitant]
     Active Substance: LABETALOL\LABETALOL HYDROCHLORIDE
     Indication: Product used for unknown indication
     Dosage: 400 MG, BID
     Route: 048
     Dates: start: 20200311
  9. CLONIDINE [Concomitant]
     Active Substance: CLONIDINE
     Indication: Product used for unknown indication
     Dosage: 0.2 MG, TID
     Route: 048
     Dates: start: 20200119
  10. TRESIBA [Concomitant]
     Active Substance: INSULIN DEGLUDEC
     Indication: Product used for unknown indication
     Dosage: 28 DF, QD
     Route: 058
     Dates: start: 20200118
  11. HYDRALAZINE [Concomitant]
     Active Substance: HYDRALAZINE HYDROCHLORIDE
     Indication: Product used for unknown indication
     Dosage: 25 MG, TID
     Route: 048
     Dates: start: 20200114
  12. RENVELA [Concomitant]
     Active Substance: SEVELAMER CARBONATE
     Indication: Product used for unknown indication
     Dosage: 1600 MG, TID
     Route: 048
     Dates: start: 20190521
  13. MULTIVITAMIN                       /00097801/ [Concomitant]
     Indication: Product used for unknown indication
     Dosage: 1 TAB, QD
     Route: 048
     Dates: start: 20190516
  14. ATORVASTATIN [Concomitant]
     Active Substance: ATORVASTATIN
     Indication: Product used for unknown indication
     Dosage: 40 MG, QD
     Route: 048
     Dates: start: 20190402
  15. PLAVIX [Concomitant]
     Active Substance: CLOPIDOGREL BISULFATE
     Indication: Product used for unknown indication
     Dosage: 75 MG, QD
     Route: 048
     Dates: start: 20190402
  16. LOSARTAN [Concomitant]
     Active Substance: LOSARTAN
     Indication: Product used for unknown indication
     Dosage: 100 MG, QD
     Route: 048
     Dates: start: 20180927
  17. LEVOTHYROXINE [Concomitant]
     Active Substance: LEVOTHYROXINE
     Indication: Product used for unknown indication
     Dosage: 50 ?G, QD
     Route: 048
     Dates: start: 20180922
  18. BISACODYL [Concomitant]
     Active Substance: BISACODYL
     Indication: Product used for unknown indication
     Dosage: 5 MG, PRN AS NEEDED
     Route: 048
     Dates: start: 20180717
  19. LASIX                              /00032601/ [Concomitant]
     Indication: Product used for unknown indication
     Dosage: 80 MG, BID
     Route: 048
     Dates: start: 20180531
  20. TYLENOL                            /00020001/ [Concomitant]
     Indication: Product used for unknown indication
     Dosage: 650 MG, AS NEEDED EVERY 6 HOURS
     Route: 048
     Dates: start: 20180531
  21. LOPERAMIDE [Concomitant]
     Active Substance: LOPERAMIDE
     Indication: Product used for unknown indication
     Dosage: 2 MG, QD AS NEEDED
     Route: 048
     Dates: start: 20180531

REACTIONS (3)
  - Intraventricular haemorrhage [Fatal]
  - Blood pressure increased [Not Recovered/Not Resolved]
  - Coma [Not Recovered/Not Resolved]

NARRATIVE: CASE EVENT DATE: 20210922
